FAERS Safety Report 9061225 (Version 2)
Quarter: 2013Q2

REPORT INFORMATION
  Report Type: Report from Study
  Country: GB (occurrence: GB)
  Receive Date: 20130204
  Receipt Date: 20130430
  Transmission Date: 20140414
  Serious: Yes (Other)
  Sender: FDA-Public Use
  Company Number: GB-GENZYME-CERZ-1002796

PATIENT
  Age: 75 Year
  Sex: Male
  Weight: 71 kg

DRUGS (10)
  1. CEREZYME [Suspect]
     Indication: GAUCHER^S DISEASE
     Dosage: 800 U/KG, 1X/W
     Route: 042
     Dates: start: 20080409, end: 200907
  2. ASPIRIN [Concomitant]
     Indication: TYPE 2 DIABETES MELLITUS
     Dosage: 75 MG, QD
     Route: 065
  3. METFORMIN [Concomitant]
     Indication: TYPE 2 DIABETES MELLITUS
     Dosage: 1 G, BID
     Route: 065
  4. PENICILLIN-V [Concomitant]
     Indication: PROPHYLAXIS
     Dosage: 250 MG, BID
     Route: 065
     Dates: start: 20080311
  5. CALCICHEW [Concomitant]
     Indication: GAUCHER^S DISEASE
     Dosage: 2 DF, QD
     Route: 065
     Dates: start: 20080729
  6. LISINOPRIL [Concomitant]
     Indication: HYPERTENSION
     Dosage: 5 MG, QD
     Route: 065
     Dates: start: 20080729
  7. LISINOPRIL [Concomitant]
     Indication: ATRIOVENTRICULAR BLOCK FIRST DEGREE
  8. ATORVASTATIN [Concomitant]
     Indication: TYPE 2 DIABETES MELLITUS
     Dosage: 40 MG, UNK (NOCTE)
     Route: 065
  9. GLICLAZIDE [Concomitant]
     Indication: TYPE 2 DIABETES MELLITUS
     Dosage: 80 MG, BID
     Route: 065
  10. LANSOPRAZOLE [Concomitant]
     Indication: DUODENITIS
     Dosage: 30 MG, QD
     Route: 065
     Dates: start: 20091007

REACTIONS (1)
  - Transient ischaemic attack [Recovered/Resolved]
